FAERS Safety Report 6707407-8 (Version None)
Quarter: 2010Q2

REPORT INFORMATION
  Report Type: 
  Country: None (occurrence: None)
  Receive Date: 20100503
  Receipt Date: 20090625
  Transmission Date: 20101027
  Serious: No
  Sender: FDA-Public Use
  Company Number: US-ASTRAZENECA-2009UW13352

PATIENT
  Age: 23934 Day
  Sex: Female

DRUGS (3)
  1. NEXIUM [Suspect]
     Route: 048
  2. THYROID TAB [Concomitant]
  3. VITAMINS [Concomitant]

REACTIONS (2)
  - DRUG INEFFECTIVE [None]
  - DYSGEUSIA [None]
